FAERS Safety Report 22278732 (Version 2)
Quarter: 2023Q2

REPORT INFORMATION
  Report Type: Report from Study
  Country: US (occurrence: US)
  Receive Date: 20230503
  Receipt Date: 20230504
  Transmission Date: 20230721
  Serious: Yes (Death, Other)
  Sender: FDA-Public Use
  Company Number: US-PFIZER INC-202300172010

PATIENT
  Age: 63 Year
  Sex: Male

DRUGS (13)
  1. LIDOCAINE HYDROCHLORIDE [Suspect]
     Active Substance: LIDOCAINE HYDROCHLORIDE
     Dosage: UNK
  2. MORPHINE SULFATE [Suspect]
     Active Substance: MORPHINE SULFATE
     Dosage: UNK
  3. CODEINE [Suspect]
     Active Substance: CODEINE
     Dosage: UNK
  4. NOSCAPINE [Suspect]
     Active Substance: NOSCAPINE
     Dosage: UNK
  5. PAPAVERINE [Suspect]
     Active Substance: PAPAVERINE
     Dosage: UNK
  6. TRAMADOL [Suspect]
     Active Substance: TRAMADOL
     Dosage: UNK
  7. ALPRAZOLAM [Suspect]
     Active Substance: ALPRAZOLAM
     Dosage: UNK
  8. MIRTAZAPINE [Suspect]
     Active Substance: MIRTAZAPINE
     Dosage: UNK
  9. CYCLOBENZAPRINE [Suspect]
     Active Substance: CYCLOBENZAPRINE
     Dosage: UNK
  10. DULOXETINE [Suspect]
     Active Substance: DULOXETINE
     Dosage: UNK
  11. BUSPIRONE [Suspect]
     Active Substance: BUSPIRONE HYDROCHLORIDE
     Dosage: UNK
  12. QUETIAPINE [Suspect]
     Active Substance: QUETIAPINE
     Dosage: UNK
  13. DESMETRAMADOL [Suspect]
     Active Substance: DESMETRAMADOL
     Dosage: UNK

REACTIONS (3)
  - Toxicity to various agents [Fatal]
  - Toxicity to various agents [Fatal]
  - Hypertensive heart disease [Fatal]
